FAERS Safety Report 10101782 (Version 1)
Quarter: 2014Q2

REPORT INFORMATION
  Report Type: Spontaneous
  Country: AU (occurrence: None)
  Receive Date: 20140422
  Receipt Date: 20140422
  Transmission Date: 20141212
  Serious: Yes (Hospitalization)
  Sender: FDA-Public Use
  Company Number: 2014P1003173

PATIENT
  Age: 75 Year
  Sex: Male

DRUGS (3)
  1. TRIMETHOPRIM [Suspect]
     Indication: URINARY TRACT INFECTION
     Dosage: 300 MG; QD; 5 DAYS
  2. LERCANIDIPINE [Concomitant]
  3. SALMETEROL/FLUTICASONE [Concomitant]

REACTIONS (5)
  - Hypovolaemia [None]
  - Blood pressure systolic decreased [None]
  - Hyponatraemia [None]
  - Hyperkalaemia [None]
  - Metabolic acidosis [None]
